FAERS Safety Report 5256512-4 (Version None)
Quarter: 2007Q1

REPORT INFORMATION
  Report Type: 
  Country: None (occurrence: None)
  Receive Date: 20061204
  Receipt Date: 20060810
  Transmission Date: 20070707
  Serious: No
  Sender: FDA-Public Use
  Company Number: 2006-BP-09343BP

PATIENT
  Age: 69 Year
  Sex: Female

DRUGS (2)
  1. SPIRIVA [Suspect]
     Indication: CHRONIC OBSTRUCTIVE PULMONARY DISEASE
     Dosage: 18 MCG (18 MCG, 1 IN 1 D), IH
     Route: 055
     Dates: start: 20040601
  2. XOPENEX [Suspect]
     Indication: CHRONIC OBSTRUCTIVE PULMONARY DISEASE
     Dosage: SEE TEXT, 1.25MG/ 3 ML NEBULIZER, IH
     Route: 055
     Dates: start: 20040101

REACTIONS (4)
  - ASTHENIA [None]
  - HYPERTENSION [None]
  - IRRITABILITY [None]
  - TREMOR [None]
